FAERS Safety Report 8988123 (Version 3)
Quarter: 2013Q2

REPORT INFORMATION
  Report Type: Spontaneous
  Country: US (occurrence: US)
  Receive Date: 20121227
  Receipt Date: 20130610
  Transmission Date: 20140414
  Serious: Yes (Other)
  Sender: FDA-Public Use
  Company Number: US-BAYER-2012-135287

PATIENT
  Age: 35 Year
  Sex: Female

DRUGS (16)
  1. YASMIN [Suspect]
     Indication: CONTRACEPTION
     Dosage: UNK
     Dates: start: 200905, end: 201012
  2. YASMIN [Suspect]
     Indication: ACNE
  3. YASMIN [Suspect]
     Indication: PREMENSTRUAL SYNDROME
  4. CARBAMAZEPIN [Concomitant]
     Dosage: UNK
     Dates: start: 2002, end: 200710
  5. LEVETIRACETAM [Concomitant]
     Dosage: UNK
     Dates: start: 200710
  6. LEVETIRACETAM [Concomitant]
     Dosage: UNK
     Dates: start: 2010
  7. ASCORBIC ACID [Concomitant]
  8. NAPROXEN [Concomitant]
     Indication: PAIN
  9. IBUPROFEN [Concomitant]
     Indication: PAIN
  10. CLINDAMYCIN PHOSPHATE [Concomitant]
     Dosage: UNK
     Dates: start: 2009
  11. ACYCLOVIR [ACICLOVIR] [Concomitant]
     Indication: ORAL HERPES
     Dosage: UNK
     Dates: start: 2000
  12. TEGRETOL [Concomitant]
     Indication: CONVULSION
     Dosage: UNK
     Dates: start: 2002, end: 2010
  13. TEMODAR [Concomitant]
     Indication: BRAIN NEOPLASM
     Dosage: UNK
     Dates: start: 2002, end: 2005
  14. TEMODAR [Concomitant]
     Indication: BRAIN NEOPLASM
     Dosage: UNK
     Dates: start: 2008, end: 2010
  15. ONDANSETRON [Concomitant]
     Indication: PROPHYLAXIS OF NAUSEA AND VOMITING
     Dosage: UNK
     Dates: start: 2002, end: 2005
  16. ONDANSETRON [Concomitant]
     Indication: PROPHYLAXIS OF NAUSEA AND VOMITING
     Dosage: UNK
     Dates: start: 2008, end: 2010

REACTIONS (7)
  - Deep vein thrombosis [None]
  - General physical health deterioration [None]
  - Injury [None]
  - Anxiety [None]
  - Emotional distress [None]
  - Pain [None]
  - Pain in extremity [None]
